FAERS Safety Report 4305235-4 (Version None)
Quarter: 2004Q1

REPORT INFORMATION
  Report Type: 
  Country: None (occurrence: None)
  Receive Date: 20040226
  Receipt Date: 20030829
  Transmission Date: 20041129
  Serious: Yes (Hospitalization)
  Sender: FDA-Public Use
  Company Number: US-ROCHE-345746

PATIENT
  Age: 80 Year
  Sex: Male
  Weight: 81.6 kg

DRUGS (6)
  1. NAPROSYN [Suspect]
     Indication: DRUG USE FOR UNKNOWN INDICATION
     Dosage: PATIENT DOUBLED HIS DOSAGE A FEW WEEKS PRIOR TO HIS HOSPITALISATION.
     Route: 065
  2. ALEVE [Suspect]
     Route: 048
     Dates: end: 20021227
  3. LEVOXYL [Concomitant]
     Indication: HYPOTHYROIDISM
  4. FINASTERIDE [Concomitant]
     Indication: PROSTATIC DISORDER
  5. NEXIUM [Concomitant]
  6. HYALGAN [Concomitant]

REACTIONS (9)
  - BARRETT'S OESOPHAGUS [None]
  - COLONIC POLYP [None]
  - DIVERTICULUM [None]
  - GASTRITIS [None]
  - HAEMATEMESIS [None]
  - HAEMATOCHEZIA [None]
  - HAEMATURIA [None]
  - HIATUS HERNIA [None]
  - OESOPHAGITIS [None]
